FAERS Safety Report 5320614-4 (Version None)
Quarter: 2007Q2

REPORT INFORMATION
  Report Type: 
  Country: None (occurrence: None)
  Receive Date: 20070509
  Receipt Date: 20070508
  Transmission Date: 20071010
  Serious: Yes (Hospitalization)
  Sender: FDA-Public Use
  Company Number: US-BRISTOL-MYERS SQUIBB COMPANY-13734215

PATIENT
  Age: 52 Year
  Sex: Female
  Weight: 134 kg

DRUGS (15)
  1. GLUCOVANCE [Suspect]
     Indication: DIABETES MELLITUS
     Route: 048
     Dates: start: 20070211, end: 20070211
  2. GLUCOVANCE [Suspect]
     Route: 048
     Dates: start: 20070211, end: 20070211
  3. GLUCOVANCE [Suspect]
     Dosage: DOSAGE FORM = 5/500
     Route: 048
     Dates: start: 20070211, end: 20070211
  4. ACTOS [Concomitant]
     Route: 048
  5. ADVAIR DISKUS 100/50 [Concomitant]
     Dosage: 100/50
     Route: 055
  6. ALBUTEROL [Concomitant]
     Route: 048
  7. PROCARDIA [Concomitant]
     Route: 048
  8. SINGULAIR [Concomitant]
     Route: 048
  9. ALBUTEROL [Concomitant]
     Route: 055
  10. ZANAFLEX [Concomitant]
     Dosage: DOSE-1 MG TABLET-1/4 TAB TID
     Route: 048
  11. ZOCOR [Concomitant]
     Route: 048
  12. AMITRIPTYLINE HCL [Concomitant]
     Route: 048
  13. FLONASE [Concomitant]
     Dosage: 50 MCG/ACT 2 SPRAYS EACH NOSTRIL ONCE DAILY
     Route: 045
  14. IBUPROFEN [Concomitant]
     Route: 048
  15. MULTI-VITAMIN [Concomitant]

REACTIONS (3)
  - BRONCHOPNEUMONIA [None]
  - CARDIAC FAILURE CONGESTIVE [None]
  - PHARMACEUTICAL PRODUCT COMPLAINT [None]
